FAERS Safety Report 15283995 (Version 2)
Quarter: 2018Q3

REPORT INFORMATION
  Report Type: Spontaneous
  Country: AU (occurrence: AU)
  Receive Date: 20180816
  Receipt Date: 20180906
  Transmission Date: 20181010
  Serious: Yes (Life-Threatening)
  Sender: FDA-Public Use
  Company Number: PHHY2018AU072620

PATIENT
  Sex: Male

DRUGS (1)
  1. COSENTYX [Suspect]
     Active Substance: SECUKINUMAB
     Indication: PSORIASIS
     Dosage: 300 MG, Q2W, FOR 6 MONTH
     Route: 065

REACTIONS (3)
  - Off label use [Unknown]
  - Weight increased [Unknown]
  - Insulin resistance [Unknown]
